FAERS Safety Report 6527964-4 (Version None)
Quarter: 2009Q4

REPORT INFORMATION
  Report Type: 
  Country: None (occurrence: None)
  Receive Date: 20091229
  Receipt Date: 20091221
  Transmission Date: 20100525
  Serious: Yes (Hospitalization)
  Sender: FDA-Public Use
  Company Number: WAES 0908FRA00034

PATIENT
  Age: 65 Year
  Sex: Male

DRUGS (2)
  1. VORINOSTAT [Suspect]
     Indication: MYELODYSPLASTIC SYNDROME
     Dosage: 400 MG/DAILY, PO
     Route: 048
     Dates: start: 20090622, end: 20090701
  2. VORINOSTAT [Suspect]
     Indication: MYELODYSPLASTIC SYNDROME
     Dosage: 400 MG/DAILY, PO
     Route: 048
     Dates: start: 20090720, end: 20090729

REACTIONS (7)
  - BLOOD CULTURE POSITIVE [None]
  - DEVICE RELATED SEPSIS [None]
  - GENERAL PHYSICAL HEALTH DETERIORATION [None]
  - HAEMATURIA [None]
  - HAEMOPTYSIS [None]
  - REFUSAL OF TREATMENT BY PATIENT [None]
  - STAPHYLOCOCCAL SEPSIS [None]
